FAERS Safety Report 10650292 (Version 3)
Quarter: 2014Q4

REPORT INFORMATION
  Report Type: Report from Study
  Country: PL (occurrence: PL)
  Receive Date: 20141212
  Receipt Date: 20141215
  Transmission Date: 20150529
  Serious: Yes (Hospitalization)
  Sender: FDA-Public Use
  Company Number: PL-009507513-1412POL000875

PATIENT
  Age: 62 Year
  Sex: Female
  Weight: 110 kg

DRUGS (12)
  1. FORMETIC [Concomitant]
     Indication: DIABETES MELLITUS
     Dosage: 1000 MG, TID
     Route: 048
     Dates: start: 201008
  2. POLPRIL [Concomitant]
     Active Substance: RAMIPRIL
     Indication: HYPERTENSION
     Dosage: 25 MICROGRAM, QD
     Route: 048
     Dates: start: 200306
  3. RANIGAST [Concomitant]
     Indication: DYSPEPSIA
     Dosage: 150 MG, BID
     Route: 048
     Dates: start: 201307
  4. ATORIS [Concomitant]
     Active Substance: ATORVASTATIN CALCIUM
     Indication: HYPERLIPIDAEMIA
     Dosage: 10 MG, QD
     Route: 048
     Dates: start: 200306
  5. KALDYUM [Concomitant]
     Active Substance: POTASSIUM CHLORIDE
     Indication: MUSCLE SPASMS
     Dosage: 315 MEQ, QD
     Route: 048
     Dates: start: 201206
  6. POLOCARD [Concomitant]
     Active Substance: ASPIRIN
     Indication: CORONARY ARTERY INSUFFICIENCY
     Dosage: 75 MG, QD
     Route: 048
     Dates: start: 200306
  7. MAGNE B6 [Concomitant]
     Active Substance: MAGNESIUM\PYRIDOXINE
     Indication: MINERAL SUPPLEMENTATION
     Dosage: 100 MG, QD
     Route: 048
     Dates: start: 201206
  8. PROCORALAN [Concomitant]
     Active Substance: IVABRADINE
     Indication: CORONARY ARTERY INSUFFICIENCY
     Dosage: 5 MG, QD
     Route: 048
     Dates: start: 200306
  9. BLINDED THERAPY [Suspect]
     Active Substance: INVESTIGATIONAL PRODUCT
     Indication: TYPE 2 DIABETES MELLITUS
     Dosage: UNK
     Route: 048
     Dates: start: 20140526, end: 20141106
  10. MYTELASE [Concomitant]
     Active Substance: AMBENONIUM CHLORIDE
     Indication: OCULAR MYASTHENIA
     Dosage: 10 MG, QD
     Route: 048
     Dates: start: 20120803
  11. TORAMIDE [Concomitant]
     Indication: HYPERTENSION
     Dosage: 10 MG, QD
     Route: 048
     Dates: start: 200306
  12. BLINDED MK-3102 [Suspect]
     Active Substance: OMARIGLIPTIN
     Indication: TYPE 2 DIABETES MELLITUS
     Dosage: UNK
     Route: 048
     Dates: start: 20140526, end: 20141103

REACTIONS (1)
  - Psoriasis [Recovered/Resolved]

NARRATIVE: CASE EVENT DATE: 20141115
